FAERS Safety Report 13572765 (Version 2)
Quarter: 2021Q1

REPORT INFORMATION
  Report Type: Spontaneous
  Country: US (occurrence: US)
  Receive Date: 20170523
  Receipt Date: 20210322
  Transmission Date: 20210419
  Serious: No
  Sender: FDA-Public Use
  Company Number: US-JNJFOC-20150926877

PATIENT
  Age: 44 Year
  Sex: Male

DRUGS (16)
  1. INVEGA SUSTENNA [Suspect]
     Active Substance: PALIPERIDONE PALMITATE
     Indication: SCHIZOPHRENIA
     Dosage: INVEGA 117 MG IM INJECTION.
     Route: 030
     Dates: start: 20141218, end: 20150705
  2. RISPERDAL [Suspect]
     Active Substance: RISPERIDONE
     Route: 048
     Dates: start: 20070807, end: 20080421
  3. RISPERDAL [Suspect]
     Active Substance: RISPERIDONE
     Route: 048
     Dates: start: 20100607, end: 20101122
  4. INVEGA SUSTENNA [Suspect]
     Active Substance: PALIPERIDONE PALMITATE
  5. RISPERDAL [Suspect]
     Active Substance: RISPERIDONE
     Route: 048
     Dates: start: 20101123, end: 20130212
  6. RISPERDAL CONSTA [Suspect]
     Active Substance: RISPERIDONE
  7. RISPERDAL CONSTA [Suspect]
     Active Substance: RISPERIDONE
  8. RISPERDAL [Suspect]
     Active Substance: RISPERIDONE
     Route: 048
     Dates: start: 20080714, end: 20100510
  9. RISPERDAL [Suspect]
     Active Substance: RISPERIDONE
     Route: 048
     Dates: start: 20100518, end: 20100606
  10. RISPERDAL CONSTA [Suspect]
     Active Substance: RISPERIDONE
     Indication: SCHIZOPHRENIA
     Dosage: INVEGA 117 MG IM INJECTION.
     Route: 030
     Dates: start: 20130213, end: 20141217
  11. INVEGA SUSTENNA [Suspect]
     Active Substance: PALIPERIDONE PALMITATE
  12. RISPERDAL [Suspect]
     Active Substance: RISPERIDONE
     Indication: SCHIZOPHRENIA
     Route: 048
     Dates: start: 20070716, end: 20070806
  13. RISPERDAL [Suspect]
     Active Substance: RISPERIDONE
     Route: 048
     Dates: start: 20100511, end: 20100517
  14. RISPERIDONE. [Suspect]
     Active Substance: RISPERIDONE
     Indication: PRODUCT USED FOR UNKNOWN INDICATION
     Route: 048
  15. RISPERDAL [Suspect]
     Active Substance: RISPERIDONE
     Route: 048
     Dates: start: 20080422, end: 20080713
  16. RISPERDAL CONSTA [Suspect]
     Active Substance: RISPERIDONE

REACTIONS (3)
  - Hyperprolactinaemia [Unknown]
  - Gynaecomastia [Unknown]
  - Abnormal weight gain [Unknown]

NARRATIVE: CASE EVENT DATE: 20141219
